FAERS Safety Report 8300842-6 (Version None)
Quarter: 2012Q2

REPORT INFORMATION
  Report Type: 
  Country: None (occurrence: None)
  Receive Date: 20120419
  Receipt Date: 20120419
  Transmission Date: 20120825
  Serious: Yes (Hospitalization)
  Sender: FDA-Public Use
  Company Number: None

PATIENT
  Sex: Male
  Weight: 87.6 kg

DRUGS (5)
  1. METHOTREXATE [Suspect]
     Dosage: 30 MG
  2. CYCLOPHOSPHAMIDE [Suspect]
     Dosage: 2000 MG
  3. PEG-L-ASPARAGINASE (K-H) [Suspect]
     Dosage: 38 IU
  4. CYTARABINE [Suspect]
     Dosage: 1200 MG
  5. MERCAPTOPURINE [Suspect]
     Dosage: 1680 MG

REACTIONS (1)
  - ANAPHYLACTIC REACTION [None]
